FAERS Safety Report 8926601 (Version 1)
Quarter: 2012Q4

REPORT INFORMATION
  Report Type: 
  Country: TR (occurrence: TR)
  Receive Date: 20121127
  Receipt Date: 20121127
  Transmission Date: 20130627
  Serious: Yes (Other)
  Sender: FDA-Public Use
  Company Number: TR-BAYER-2012-122225

PATIENT
  Age: 64 Year
  Sex: Male

DRUGS (1)
  1. ULTRAVIST [Suspect]
     Indication: CORONARY ANGIOGRAPH
     Dosage: 120 ml, UNK

REACTIONS (1)
  - Delirium [Recovered/Resolved]
